FAERS Safety Report 5487589-9 (Version None)
Quarter: 2007Q4

REPORT INFORMATION
  Report Type: 
  Country: None (occurrence: None)
  Receive Date: 20071016
  Receipt Date: 20071008
  Transmission Date: 20080405
  Serious: Yes (Death, Hospitalization)
  Sender: FDA-Public Use
  Company Number: IN-ELI_LILLY_AND_COMPANY-IN200710001134

PATIENT
  Age: 60 Year
  Sex: Female

DRUGS (2)
  1. HUMALOG MIX 75/25 [Suspect]
     Indication: DIABETES MELLITUS
     Dosage: UNK, UNK
     Route: 058
     Dates: start: 20070101, end: 20070101
  2. HUMULIN R [Suspect]
     Indication: DIABETES MELLITUS
     Dosage: 40 IU, UNK
     Dates: start: 20070101, end: 20070101

REACTIONS (4)
  - DEATH [None]
  - DIABETES MELLITUS INADEQUATE CONTROL [None]
  - RENAL DISORDER [None]
  - SWELLING [None]
